FAERS Safety Report 7408828-0 (Version None)
Quarter: 2011Q2

REPORT INFORMATION
  Report Type: 
  Country: None (occurrence: None)
  Receive Date: 20110412
  Receipt Date: 20110330
  Transmission Date: 20111010
  Serious: Yes (Death)
  Sender: FDA-Public Use
  Company Number: AT-ACTELION-A-CH2011-46891

PATIENT
  Sex: Male
  Weight: 65 kg

DRUGS (2)
  1. REVATIO [Concomitant]
     Dosage: UNK
  2. TRACLEER [Suspect]
     Indication: PULMONARY ARTERIAL HYPERTENSION
     Dosage: 250 MG, BID
     Route: 048
     Dates: start: 20050801, end: 20110101

REACTIONS (1)
  - MULTIMORBIDITY [None]
